FAERS Safety Report 16578880 (Version 2)
Quarter: 2019Q3

REPORT INFORMATION
  Report Type: Spontaneous
  Country: GB (occurrence: GB)
  Receive Date: 20190716
  Receipt Date: 20190822
  Transmission Date: 20191004
  Serious: Yes (Other)
  Sender: FDA-Public Use
  Company Number: GB-MYLANLABS-2019M1066447

PATIENT
  Age: 43 Year
  Sex: Male

DRUGS (4)
  1. DECAPEPTYL (ACETATE) [Suspect]
     Active Substance: TRIPTORELIN ACETATE
     Indication: TRANSGENDER HORMONAL THERAPY
     Dosage: UNK
  2. ESTRADIOL. [Suspect]
     Active Substance: ESTRADIOL
     Indication: TRANSGENDER HORMONAL THERAPY
     Dosage: UNK
  3. ESTRADIOL VALERATE. [Suspect]
     Active Substance: ESTRADIOL VALERATE
     Indication: TRANSGENDER HORMONAL THERAPY
     Dosage: UNK
     Route: 048
  4. DECAPEPTYL (ACETATE) [Suspect]
     Active Substance: TRIPTORELIN ACETATE
     Dosage: UNK

REACTIONS (7)
  - Interstitial lung disease [Unknown]
  - Overlap syndrome [Recovering/Resolving]
  - Gastrooesophageal reflux disease [Unknown]
  - Myositis-like syndrome [Unknown]
  - Systemic scleroderma [Unknown]
  - Off label use [Unknown]
  - Raynaud^s phenomenon [Unknown]
